FAERS Safety Report 21632587 (Version 1)
Quarter: 2022Q4

REPORT INFORMATION
  Report Type: Spontaneous
  Country: US (occurrence: None)
  Receive Date: 20221122
  Receipt Date: 20221122
  Transmission Date: 20230113
  Serious: Yes (Hospitalization)
  Sender: FDA-Public Use
  Company Number: None

PATIENT
  Age: 64 Year
  Sex: Female

DRUGS (1)
  1. INLYTA [Suspect]
     Active Substance: AXITINIB
     Indication: Renal cancer
     Dosage: 5MG TWICE DAILY  ORAL ?
     Route: 048
     Dates: start: 20220217

REACTIONS (2)
  - Pulmonary thrombosis [None]
  - Therapy interrupted [None]

NARRATIVE: CASE EVENT DATE: 20221107
